FAERS Safety Report 6655801-6 (Version None)
Quarter: 2010Q1

REPORT INFORMATION
  Report Type: 
  Country: None (occurrence: None)
  Receive Date: 20100329
  Receipt Date: 20100319
  Transmission Date: 20100710
  Serious: No
  Sender: FDA-Public Use
  Company Number: DE-ROCHE-403611

PATIENT
  Sex: Female

DRUGS (4)
  1. TAMIFLU [Suspect]
     Indication: BRONCHITIS
     Route: 048
     Dates: start: 20050321, end: 20050325
  2. ATMADISC [Concomitant]
     Indication: BRONCHITIS
     Dates: start: 20050321, end: 20050323
  3. TELFAST [Concomitant]
     Dates: start: 20050330, end: 20050405
  4. CELESTAMINE TAB [Concomitant]
     Dates: start: 20050329, end: 20050329

REACTIONS (2)
  - NO ADVERSE EVENT [None]
  - PREGNANCY [None]
